FAERS Safety Report 7998784-9 (Version None)
Quarter: 2011Q4

REPORT INFORMATION
  Report Type: 
  Country: None (occurrence: None)
  Receive Date: 20111221
  Receipt Date: 20111216
  Transmission Date: 20120403
  Serious: Yes (Hospitalization, Other)
  Sender: FDA-Public Use
  Company Number: JP-B.I. PHARMACEUTICALS,INC./RIDGEFIELD-2011-BP-28301NB

PATIENT
  Sex: Male

DRUGS (3)
  1. PRADAXA [Suspect]
     Dosage: 220 MG
     Route: 048
     Dates: start: 20111026
  2. TAMBOCOR [Concomitant]
     Dosage: 100 MG
     Route: 048
     Dates: start: 20111026
  3. PRADAXA [Suspect]
     Indication: ATRIAL FIBRILLATION
     Dosage: 300 MG
     Route: 048

REACTIONS (4)
  - LACUNAR INFARCTION [None]
  - EPISTAXIS [None]
  - HYPERTENSION [None]
  - SLEEP APNOEA SYNDROME [None]
